FAERS Safety Report 5920962-0 (Version None)
Quarter: 2008Q4

REPORT INFORMATION
  Report Type: 
  Country: None (occurrence: None)
  Receive Date: 20081014
  Receipt Date: 20080929
  Transmission Date: 20090506
  Serious: Yes (Other)
  Sender: FDA-Public Use
  Company Number: 1000001251

PATIENT
  Age: 18 Year
  Sex: Female
  Weight: 150 kg

DRUGS (4)
  1. CITALOPRAM HYDROBROMIDE [Suspect]
     Dosage: (100 MG, ONCE), ORAL
     Route: 048
     Dates: start: 20080914, end: 20080914
  2. MIRTAZAPINE [Suspect]
     Dosage: (30 MG, ONCE), ORAL
     Route: 048
     Dates: start: 20080914, end: 20080914
  3. NEUROCIL (50 MILLIGRAM, TABLETS) [Suspect]
     Dosage: (350 MG, ONCE), ORAL
     Route: 048
     Dates: start: 20080914, end: 20080914
  4. RISPERDAL [Suspect]
     Dosage: (12 MG, ONCE), ORAL
     Route: 048
     Dates: start: 20080914, end: 20080914

REACTIONS (4)
  - DIZZINESS [None]
  - LISTLESS [None]
  - MULTIPLE DRUG OVERDOSE INTENTIONAL [None]
  - SUICIDE ATTEMPT [None]
